FAERS Safety Report 7525588-3 (Version None)
Quarter: 2011Q2

REPORT INFORMATION
  Report Type: 
  Country: None (occurrence: None)
  Receive Date: 20110606
  Receipt Date: 20110523
  Transmission Date: 20111010
  Serious: Yes (Other)
  Sender: FDA-Public Use
  Company Number: PHHY2011US45668

PATIENT
  Sex: Female
  Weight: 45.351 kg

DRUGS (9)
  1. FEMARA [Suspect]
     Indication: BREAST CANCER
     Dosage: 2.5 MG, QD
     Route: 048
     Dates: start: 20090609, end: 20110522
  2. ASTELIN [Concomitant]
  3. AZELASTINE HCL [Concomitant]
  4. NASACORT AQ [Concomitant]
     Dosage: EVERY OTHER DAY
  5. FEMARA [Suspect]
     Dosage: 2.5 MG, QD
     Route: 048
  6. OTHER MINERAL SUPPLEMENTS [Concomitant]
  7. PREMARIN [Suspect]
     Dosage: UNK
  8. CLARITIN [Concomitant]
  9. OSTEO BI-FLEX [Concomitant]

REACTIONS (18)
  - ARTHRALGIA [None]
  - CATARACT [None]
  - VISUAL IMPAIRMENT [None]
  - DEPRESSED MOOD [None]
  - PAIN IN EXTREMITY [None]
  - NEUROPATHY PERIPHERAL [None]
  - DRY EYE [None]
  - STRESS [None]
  - DEPRESSION [None]
  - VITREOUS FLOATERS [None]
  - ARTHRITIS [None]
  - JOINT STIFFNESS [None]
  - BLEPHARITIS [None]
  - ANXIETY [None]
  - MIGRAINE WITH AURA [None]
  - HEADACHE [None]
  - HYPOAESTHESIA [None]
  - APATHY [None]
